FAERS Safety Report 8808464 (Version 1)
Quarter: 2012Q4

REPORT INFORMATION
  Report Type: Spontaneous
  Country: US (occurrence: None)
  Receive Date: 20120920
  Receipt Date: 20120920
  Transmission Date: 20130627
  Serious: No
  Sender: FDA-Public Use
  Company Number: None

PATIENT

DRUGS (2)
  1. MAGNESIUM SULFATE [Suspect]
  2. MAGNESIUM CITRATE [Suspect]

REACTIONS (5)
  - Nausea [None]
  - Vomiting [None]
  - Flushing [None]
  - Atrioventricular block first degree [None]
  - Electrocardiogram QT prolonged [None]
